FAERS Safety Report 16660805 (Version 1)
Quarter: 2019Q3

REPORT INFORMATION
  Report Type: Spontaneous
  Country: US (occurrence: US)
  Receive Date: 20190801
  Receipt Date: 20190801
  Transmission Date: 20191004
  Serious: Yes (Other)
  Sender: FDA-Public Use
  Company Number: None

PATIENT
  Age: 71 Year
  Sex: Female

DRUGS (13)
  1. ALPRAZOLAM. [Concomitant]
     Active Substance: ALPRAZOLAM
  2. DULOXETINE. [Concomitant]
     Active Substance: DULOXETINE
  3. TRAZODONE [Concomitant]
     Active Substance: TRAZODONE HYDROCHLORIDE
  4. MONTELUKAST [Concomitant]
     Active Substance: MONTELUKAST SODIUM
  5. IBRANCE [Suspect]
     Active Substance: PALBOCICLIB
     Indication: BREAST CANCER
     Route: 048
     Dates: start: 20180402
  6. AMOXICILLIN. [Concomitant]
     Active Substance: AMOXICILLIN
  7. APAP/CODEINE [Concomitant]
     Active Substance: ACETAMINOPHEN\CODEINE PHOSPHATE
  8. AZITHROMYCIN ANHYDROUS. [Concomitant]
     Active Substance: AZITHROMYCIN ANHYDROUS
  9. QUETIAPIANE [Concomitant]
  10. ONDASETRON [Concomitant]
     Active Substance: ONDANSETRON
  11. DICLOFENAC GEL [Concomitant]
     Active Substance: DICLOFENAC
  12. METHIMAZOLE. [Concomitant]
     Active Substance: METHIMAZOLE
  13. DESVENLAFAX [Concomitant]

REACTIONS (1)
  - Cataract [None]
